FAERS Safety Report 24213248 (Version 1)
Quarter: 2024Q3

REPORT INFORMATION
  Report Type: Spontaneous
  Country: US (occurrence: None)
  Receive Date: 20240814
  Receipt Date: 20240814
  Transmission Date: 20241016
  Serious: No
  Sender: Public
  Company Number: None

PATIENT
  Sex: 0

DRUGS (3)
  1. MELOXICAM [Suspect]
     Active Substance: MELOXICAM
  2. NAPROXEN [Suspect]
     Active Substance: NAPROXEN
  3. IBUPROFEN [Suspect]
     Active Substance: IBUPROFEN

REACTIONS (2)
  - Inflammation [None]
  - Drug ineffective [None]
